FAERS Safety Report 16053371 (Version 1)
Quarter: 2019Q1

REPORT INFORMATION
  Report Type: Spontaneous
  Country: CN (occurrence: CN)
  Receive Date: 20190308
  Receipt Date: 20190308
  Transmission Date: 20190418
  Serious: Yes (Other)
  Sender: FDA-Public Use
  Company Number: CN-B. BRAUN MEDICAL INC.-2063755

PATIENT
  Age: 68 Year
  Sex: Female
  Weight: 52.5 kg

DRUGS (4)
  1. NUTRILIPID I.V. FAT EMULSION [Suspect]
     Active Substance: SOYBEAN OIL
  2. GLUCOSE 50% [Concomitant]
     Active Substance: DEXTROSE
  3. GLUCOSE 10% [Concomitant]
     Active Substance: DEXTROSE
  4. COMPOUND AMINO ACID (15) DIPEPTIDE (2) [Concomitant]

REACTIONS (5)
  - Dyspnoea [None]
  - Blood pressure increased [None]
  - Flushing [None]
  - Heart rate increased [None]
  - Back pain [None]
